FAERS Safety Report 4360568-0 (Version None)
Quarter: 2004Q2

REPORT INFORMATION
  Report Type: 
  Country: None (occurrence: None)
  Receive Date: 20040519
  Receipt Date: 20040408
  Transmission Date: 20050107
  Serious: Yes (Hospitalization)
  Sender: FDA-Public Use
  Company Number: PHRM2004FR01488

PATIENT
  Age: 45 Year
  Sex: Female
  Weight: 65 kg

DRUGS (4)
  1. GLEEVEC [Suspect]
     Indication: CHRONIC MYELOID LEUKAEMIA
     Dosage: 400 MG DAILY
     Route: 048
     Dates: start: 20031209, end: 20040221
  2. ALPRAZOLAM [Concomitant]
     Indication: DEPRESSION
     Dates: start: 20030701
  3. ZOLPIDEM TARTRATE [Concomitant]
     Route: 048
     Dates: start: 20030701
  4. PAROXETINE HCL [Concomitant]
     Route: 048
     Dates: start: 20030701

REACTIONS (14)
  - ALOPECIA [None]
  - BLOOD ALKALINE PHOSPHATASE INCREASED [None]
  - CARDIAC FAILURE [None]
  - CHOLESTASIS [None]
  - EJECTION FRACTION DECREASED [None]
  - FEBRILE NEUTROPENIA [None]
  - GAMMA-GLUTAMYLTRANSFERASE INCREASED [None]
  - HAEMATOTOXICITY [None]
  - PERICARDITIS [None]
  - SKIN DESQUAMATION [None]
  - SKIN INFECTION [None]
  - STAPHYLOCOCCAL INFECTION [None]
  - STAPHYLOCOCCAL SEPSIS [None]
  - VIRAL INFECTION [None]
